FAERS Safety Report 22911449 (Version 2)
Quarter: 2023Q4

REPORT INFORMATION
  Report Type: Report from Study
  Country: US (occurrence: US)
  Receive Date: 20230906
  Receipt Date: 20231027
  Transmission Date: 20240110
  Serious: Yes (Hospitalization, Other)
  Sender: FDA-Public Use
  Company Number: US-ABBVIE-5320076

PATIENT
  Sex: Female

DRUGS (3)
  1. SKYRIZI [Suspect]
     Active Substance: RISANKIZUMAB-RZAA
     Indication: Psoriasis
     Dosage: WEEK ZERO?FORM STRENGTH: 150 MILLIGRAM
     Route: 058
     Dates: start: 20230703, end: 20230703
  2. SKYRIZI [Suspect]
     Active Substance: RISANKIZUMAB-RZAA
     Indication: Psoriatic arthropathy
     Dosage: WEEK FOUR?FORM STRENGTH: 150 MILLIGRAM
     Route: 058
     Dates: start: 20230731, end: 20230731
  3. SKYRIZI [Suspect]
     Active Substance: RISANKIZUMAB-RZAA
     Indication: Psoriasis
     Route: 058

REACTIONS (7)
  - Abdominal hernia [Recovered/Resolved]
  - Injection site bruising [Unknown]
  - Arthralgia [Recovered/Resolved]
  - Mass [Unknown]
  - Abdominal pain [Recovered/Resolved]
  - Arthralgia [Unknown]
  - Arthralgia [Not Recovered/Not Resolved]

NARRATIVE: CASE EVENT DATE: 20230101
